FAERS Safety Report 6427308-2 (Version None)
Quarter: 2009Q4

REPORT INFORMATION
  Report Type: 
  Country: None (occurrence: None)
  Receive Date: 20091104
  Receipt Date: 20091102
  Transmission Date: 20100525
  Serious: Yes (Death, Other)
  Sender: FDA-Public Use
  Company Number: B0601408A

PATIENT
  Sex: Female

DRUGS (1)
  1. ALKERAN [Suspect]
     Indication: DRUG USE FOR UNKNOWN INDICATION
     Route: 042
     Dates: start: 20070101, end: 20080101

REACTIONS (6)
  - AMYLOIDOSIS [None]
  - CONDITION AGGRAVATED [None]
  - DYSPNOEA [None]
  - LUNG INFECTION [None]
  - PULMONARY FIBROSIS [None]
  - RESPIRATORY FAILURE [None]
